FAERS Safety Report 13943048 (Version 1)
Quarter: 2017Q3

REPORT INFORMATION
  Report Type: Spontaneous
  Country: AU (occurrence: AU)
  Receive Date: 20170907
  Receipt Date: 20170907
  Transmission Date: 20171128
  Serious: Yes (Other)
  Sender: FDA-Public Use
  Company Number: PHHY2017AU128047

PATIENT
  Age: 35 Year
  Sex: Female

DRUGS (1)
  1. QUETIAPINE. [Suspect]
     Active Substance: QUETIAPINE
     Indication: PERINATAL DEPRESSION
     Dosage: 100 MG, QD, NIGHTLY
     Route: 065

REACTIONS (5)
  - Corneal oedema [Recovering/Resolving]
  - Optic neuropathy [Unknown]
  - Intraocular pressure increased [Recovering/Resolving]
  - Angle closure glaucoma [Unknown]
  - Vision blurred [Unknown]
